FAERS Safety Report 12324048 (Version 1)
Quarter: 2016Q2

REPORT INFORMATION
  Report Type: Report from Study
  Country: US (occurrence: US)
  Receive Date: 20160502
  Receipt Date: 20160502
  Transmission Date: 20160815
  Serious: No
  Sender: FDA-Public Use
  Company Number: US-ABBVIE-15P-163-1432663-00

PATIENT
  Age: 54 Year
  Sex: Male

DRUGS (4)
  1. LOSARTIN [Concomitant]
     Active Substance: LOSARTAN
     Indication: HYPERTENSION
     Route: 065
  2. ANDROGEL [Suspect]
     Active Substance: TESTOSTERONE
     Indication: HYPOGONADISM
     Dosage: 3 PUMPS DAILY
     Route: 061
     Dates: start: 201407
  3. FLOMAX [Concomitant]
     Active Substance: TAMSULOSIN HYDROCHLORIDE
     Indication: BENIGN PROSTATIC HYPERPLASIA
     Route: 065
  4. METFORMIN [Concomitant]
     Active Substance: METFORMIN HYDROCHLORIDE
     Indication: DIABETES MELLITUS
     Route: 065

REACTIONS (3)
  - Pollakiuria [Not Recovered/Not Resolved]
  - Urine flow decreased [Not Recovered/Not Resolved]
  - Ejaculation disorder [Not Recovered/Not Resolved]

NARRATIVE: CASE EVENT DATE: 201502
